FAERS Safety Report 13659750 (Version 1)
Quarter: 2017Q2

REPORT INFORMATION
  Report Type: Spontaneous
  Country: US (occurrence: US)
  Receive Date: 20170616
  Receipt Date: 20170616
  Transmission Date: 20170830
  Serious: Yes (Other)
  Sender: FDA-Public Use
  Company Number: None

PATIENT
  Age: 72 Year
  Sex: Male
  Weight: 75.75 kg

DRUGS (5)
  1. LOVASTATINE [Concomitant]
     Active Substance: LOVASTATIN
  2. INDOMETHACIN 50MG MYLAN [Suspect]
     Active Substance: INDOMETHACIN
     Indication: GOUT
     Dosage: 1 CAPSULE 3 TIMES A DAY MOUTH
     Route: 048
     Dates: start: 20170519, end: 20170521
  3. ASPIRIN. [Concomitant]
     Active Substance: ASPIRIN
  4. LISINOPRIL. [Concomitant]
     Active Substance: LISINOPRIL
  5. VESICARE OR MYRBETRIQ [Concomitant]

REACTIONS (3)
  - Hemiparesis [None]
  - Hypertension [None]
  - Abdominal pain upper [None]

NARRATIVE: CASE EVENT DATE: 20170505
